FAERS Safety Report 8734506 (Version 1)
Quarter: 2012Q4

REPORT INFORMATION
  Report Type: 
  Country: US (occurrence: US)
  Receive Date: 20120912
  Receipt Date: 20120912
  Transmission Date: 20130627
  Serious: Yes (Death, Hospitalization, Other)
  Sender: FDA-Public Use
  Company Number: US-ROCHE-1097943

PATIENT
  Age: 55 Year
  Sex: Female

DRUGS (2)
  1. ACTIVASE [Suspect]
     Indication: MYOCARDIAL INFARCTION
     Route: 065
  2. ACTIVASE [Suspect]
     Route: 065

REACTIONS (13)
  - Cardiogenic shock [Fatal]
  - Palpitations [Unknown]
  - Ventricular fibrillation [Unknown]
  - Ventricular tachycardia [Unknown]
  - Dizziness [Unknown]
  - Hyponatraemia [Unknown]
  - Angina pectoris [Unknown]
  - Hypotension [Unknown]
  - Atrioventricular block second degree [Unknown]
  - Nausea [Unknown]
  - Chest discomfort [Unknown]
  - Blood creatine phosphokinase increased [Unknown]
  - Atrioventricular block complete [Unknown]
